FAERS Safety Report 11772822 (Version 1)
Quarter: 2015Q4

REPORT INFORMATION
  Report Type: Spontaneous
  Country: US (occurrence: US)
  Receive Date: 20151124
  Receipt Date: 20151124
  Transmission Date: 20160304
  Serious: Yes (Hospitalization)
  Sender: FDA-Public Use
  Company Number: US-MALLINCKRODT-T201504129

PATIENT
  Sex: Female

DRUGS (4)
  1. BACLOFEN. [Suspect]
     Active Substance: BACLOFEN
     Indication: MUSCLE SPASTICITY
     Dosage: 120 MG, UNK
     Route: 048
  2. GABLOFEN [Suspect]
     Active Substance: BACLOFEN
     Indication: MUSCLE SPASTICITY
     Dosage: 49.96 MCG/DAY
     Route: 037
     Dates: start: 20150820, end: 2015
  3. GABLOFEN [Suspect]
     Active Substance: BACLOFEN
     Dosage: 75 MCG/DAY
     Route: 037
     Dates: start: 2015, end: 2015
  4. GABLOFEN [Suspect]
     Active Substance: BACLOFEN
     Dosage: 105 MCG/DAY
     Route: 037
     Dates: start: 2015, end: 2015

REACTIONS (3)
  - Asthenia [Recovered/Resolved]
  - Conversion disorder [Recovered/Resolved]
  - Post procedural infection [Recovered/Resolved]

NARRATIVE: CASE EVENT DATE: 2015
